FAERS Safety Report 8156115-8 (Version None)
Quarter: 2012Q1

REPORT INFORMATION
  Report Type: 
  Country: None (occurrence: None)
  Receive Date: 20120221
  Receipt Date: 20120221
  Transmission Date: 20120608
  Serious: No
  Sender: FDA-Public Use
  Company Number: None

PATIENT
  Sex: Female
  Weight: 81.6475 kg

DRUGS (2)
  1. COUMADIN [Suspect]
  2. COUMADIN [Suspect]

REACTIONS (2)
  - MITRAL VALVE REPLACEMENT [None]
  - PRODUCT SUBSTITUTION ISSUE [None]
